FAERS Safety Report 7426180-1 (Version None)
Quarter: 2011Q2

REPORT INFORMATION
  Report Type: 
  Country: None (occurrence: None)
  Receive Date: 20110420
  Receipt Date: 20110418
  Transmission Date: 20111010
  Serious: Yes (Death, Other)
  Sender: FDA-Public Use
  Company Number: PHHY2011CA16244

PATIENT
  Sex: Male

DRUGS (5)
  1. MITOXANTRONE [Concomitant]
  2. CYCLOPHOSPHAMIDE [Concomitant]
  3. ZOMETA [Suspect]
     Indication: PROSTATE CANCER METASTATIC
     Dosage: 4 MG, UNK
     Route: 042
     Dates: start: 20080226, end: 20091215
  4. PREDNISOLONE ACETATE [Concomitant]
  5. DOCETAXEL [Concomitant]

REACTIONS (6)
  - BONE DISORDER [None]
  - OSTEONECROSIS OF JAW [None]
  - PAIN [None]
  - JAW DISORDER [None]
  - NEOPLASM MALIGNANT [None]
  - GENERAL PHYSICAL HEALTH DETERIORATION [None]
